FAERS Safety Report 14946487 (Version 2)
Quarter: 2018Q2

REPORT INFORMATION
  Report Type: Spontaneous
  Country: JP (occurrence: JP)
  Receive Date: 20180529
  Receipt Date: 20180612
  Transmission Date: 20180711
  Serious: Yes (Other)
  Sender: FDA-Public Use
  Company Number: JP-JNJFOC-20180534696

PATIENT
  Age: 87 Year
  Sex: Female

DRUGS (3)
  1. RIVASTIGMINE. [Concomitant]
     Active Substance: RIVASTIGMINE
     Indication: DEMENTIA ALZHEIMER^S TYPE
     Route: 065
  2. REMINYL [Suspect]
     Active Substance: GALANTAMINE
     Indication: DEMENTIA ALZHEIMER^S TYPE
     Route: 048
  3. REMINYL [Suspect]
     Active Substance: GALANTAMINE
     Indication: DEMENTIA ALZHEIMER^S TYPE
     Route: 048

REACTIONS (2)
  - Loss of consciousness [Unknown]
  - Tremor [Unknown]
